FAERS Safety Report 23600599 (Version 1)
Quarter: 2024Q1

REPORT INFORMATION
  Report Type: Spontaneous
  Country: BR (occurrence: BR)
  Receive Date: 20240306
  Receipt Date: 20240306
  Transmission Date: 20240410
  Serious: Yes (Other)
  Sender: FDA-Public Use
  Company Number: BR-BAYER-2024A029469

PATIENT
  Age: 39 Year
  Sex: Female

DRUGS (2)
  1. MIRENA [Suspect]
     Active Substance: LEVONORGESTREL
     Indication: Contraception
     Dosage: 20?G/DAY
     Route: 015
     Dates: start: 20190331
  2. MIRENA [Suspect]
     Active Substance: LEVONORGESTREL
     Indication: Abdominal pain

REACTIONS (4)
  - Device breakage [None]
  - Complication of device removal [None]
  - Procedural pain [None]
  - Abdominal pain lower [Recovered/Resolved]
